FAERS Safety Report 7535805-1 (Version None)
Quarter: 2011Q2

REPORT INFORMATION
  Report Type: 
  Country: None (occurrence: None)
  Receive Date: 20110607
  Receipt Date: 20110607
  Transmission Date: 20111010
  Serious: No
  Sender: FDA-Public Use
  Company Number: None

PATIENT
  Age: 68 Year
  Sex: Female
  Weight: 68.0396 kg

DRUGS (1)
  1. TOBRAMYCIN AND DEXAMETHASONE [Suspect]
     Indication: EYE INJURY
     Dosage: 1 DROP 4XDAILY INTRAOCULAR
     Route: 031
     Dates: start: 20110124, end: 20110330

REACTIONS (1)
  - DEAFNESS UNILATERAL [None]
